FAERS Safety Report 5757347-6 (Version None)
Quarter: 2008Q2

REPORT INFORMATION
  Report Type: 
  Country: None (occurrence: None)
  Receive Date: 20080603
  Receipt Date: 20080519
  Transmission Date: 20081010
  Serious: Yes (Other)
  Sender: FDA-Public Use
  Company Number: ES-BAYER-200818875GPV

PATIENT
  Age: 74 Year
  Sex: Male

DRUGS (7)
  1. ASPIRIN [Interacting]
     Indication: DRUG USE FOR UNKNOWN INDICATION
     Route: 065
  2. DIANBEN/ METFORMINE [Interacting]
     Indication: DRUG USE FOR UNKNOWN INDICATION
     Route: 065
  3. MEMANTINE HCL [Suspect]
     Indication: DRUG USE FOR UNKNOWN INDICATION
     Route: 065
     Dates: start: 20071201, end: 20080219
  4. CARDYL/ ATORVASTATINE [Suspect]
     Indication: DRUG USE FOR UNKNOWN INDICATION
     Route: 065
  5. NEURONTIN/ GABAPENTINE [Suspect]
     Indication: DRUG USE FOR UNKNOWN INDICATION
     Route: 065
  6. EXELON [Suspect]
     Indication: AMNESIA
     Route: 048
     Dates: start: 19961201
  7. HUMALINA/INSULIN ISOPHANE HUMAN PRB [Interacting]
     Indication: DRUG USE FOR UNKNOWN INDICATION
     Route: 065

REACTIONS (5)
  - AMNESIA [None]
  - COORDINATION ABNORMAL [None]
  - DISORIENTATION [None]
  - INSOMNIA [None]
  - SYNCOPE [None]
